FAERS Safety Report 8875200 (Version 2)
Quarter: 2014Q2

REPORT INFORMATION
  Report Type: Spontaneous
  Country: US (occurrence: US)
  Receive Date: 20121029
  Receipt Date: 20131024
  Transmission Date: 20141212
  Serious: No
  Sender: FDA-Public Use
  Company Number: US-PFIZER INC-2012268101

PATIENT
  Age: 53 Year
  Sex: Female
  Weight: 63 kg

DRUGS (3)
  1. CELEBREX [Suspect]
     Indication: OSTEOARTHRITIS
     Dosage: 200 MG, DAILY
     Route: 048
     Dates: start: 20121022, end: 20121023
  2. ATENOLOL [Suspect]
     Indication: MITRAL VALVE PROLAPSE
     Dosage: SPLITTING THE 25 MG TABLET, DAILY
  3. EVISTA [Concomitant]
     Indication: OSTEOPOROSIS
     Dosage: 60 MG, DAILY

REACTIONS (3)
  - Palpitations [Unknown]
  - Injection site pain [Unknown]
  - Myalgia [Recovered/Resolved]
